FAERS Safety Report 12642473 (Version 1)
Quarter: 2016Q3

REPORT INFORMATION
  Report Type: Spontaneous
  Country: None (occurrence: FR)
  Receive Date: 20160810
  Receipt Date: 20160810
  Transmission Date: 20161109
  Serious: Yes (Hospitalization)
  Sender: FDA-Public Use
  Company Number: FR-MEDAC PHARMA, INC.-1056176

PATIENT
  Age: 78 Year
  Sex: Female

DRUGS (16)
  1. LEXOMIL [Concomitant]
     Active Substance: BROMAZEPAM
  2. CALCIDOSE VITAMIN D3 [Concomitant]
     Active Substance: CALCIUM CARBONATE\CHOLECALCIFEROL
  3. LEVOTHYROXINE SODIUM. [Concomitant]
     Active Substance: LEVOTHYROXINE SODIUM
  4. PARACETAMOL [Concomitant]
     Active Substance: ACETAMINOPHEN
  5. NOVATREX NOS [Suspect]
     Active Substance: AZITHROMYCIN OR METHOTREXATE SODIUM
     Route: 048
     Dates: start: 201509, end: 201601
  6. TILDIEM [Concomitant]
     Active Substance: DILTIAZEM HYDROCHLORIDE
  7. ATACAND [Concomitant]
     Active Substance: CANDESARTAN CILEXETIL
  8. MIRTAZAPINE. [Concomitant]
     Active Substance: MIRTAZAPINE
  9. ZOLPIDEM [Concomitant]
     Active Substance: ZOLPIDEM\ZOLPIDEM TARTRATE
  10. FLUINDIONE [Concomitant]
     Active Substance: FLUINDIONE
  11. FOLIC ACID. [Concomitant]
     Active Substance: FOLIC ACID
     Dates: start: 20160108
  12. STAGID [Concomitant]
     Active Substance: METFORMIN PAMOATE
  13. PANTOPRAZOLE SODIUM. [Concomitant]
     Active Substance: PANTOPRAZOLE SODIUM
  14. METOJECT [Suspect]
     Active Substance: METHOTREXATE SODIUM
     Indication: RHEUMATOID ARTHRITIS
     Route: 030
     Dates: start: 201601, end: 20160224
  15. PREDNISONE. [Concomitant]
     Active Substance: PREDNISONE
  16. FENTANYL. [Concomitant]
     Active Substance: FENTANYL

REACTIONS (3)
  - Prinzmetal angina [Unknown]
  - Infection [Recovering/Resolving]
  - Pancytopenia [Recovered/Resolved]

NARRATIVE: CASE EVENT DATE: 20160224
